FAERS Safety Report 10655620 (Version 1)
Quarter: 2014Q4

REPORT INFORMATION
  Report Type: Spontaneous
  Country: None (occurrence: None)
  Receive Date: 20141215
  Receipt Date: 20141215
  Transmission Date: 20150529
  Serious: No
  Sender: FDA-Public Use
  Company Number: None

PATIENT
  Age: 28 Year
  Sex: Female
  Weight: 83.01 kg

DRUGS (1)
  1. TAMIFLU [Suspect]
     Active Substance: OSELTAMIVIR PHOSPHATE
     Indication: INFLUENZA
     Dosage: 1 PILL TWICE A DAY TWICE DAILY TAKEN BY MOUTH
     Route: 048
     Dates: start: 20141211, end: 20141214

REACTIONS (2)
  - Epistaxis [None]
  - Dry mouth [None]

NARRATIVE: CASE EVENT DATE: 20141213
